FAERS Safety Report 8268897-5 (Version None)
Quarter: 2012Q1

REPORT INFORMATION
  Report Type: 
  Country: None (occurrence: None)
  Receive Date: 20120327
  Receipt Date: 20091211
  Transmission Date: 20120608
  Serious: Yes (Other)
  Sender: FDA-Public Use
  Company Number: PHEH2009US04753

PATIENT
  Age: 61 Year
  Sex: Female

DRUGS (5)
  1. GLEEVEC [Suspect]
     Indication: CHROMOSOME ANALYSIS ABNORMAL
     Dosage: 400 MG, QD, 400 MG EVERY OTHER DAY, 400 MG, QD, 400  MG EVERY OTHER DAY
     Dates: start: 20080207, end: 20080228
  2. GLEEVEC [Suspect]
     Indication: CHROMOSOME ANALYSIS ABNORMAL
     Dosage: 400 MG, QD, 400 MG EVERY OTHER DAY, 400 MG, QD, 400  MG EVERY OTHER DAY
     Dates: start: 20080124, end: 20080131
  3. GLEEVEC [Suspect]
     Indication: CHROMOSOME ANALYSIS ABNORMAL
     Dosage: 400 MG, QD, 400 MG EVERY OTHER DAY, 400 MG, QD, 400  MG EVERY OTHER DAY
     Dates: start: 20080229, end: 20080925
  4. GLEEVEC [Suspect]
     Indication: CHROMOSOME ANALYSIS ABNORMAL
     Dosage: 400 MG, QD, 400 MG EVERY OTHER DAY, 400 MG, QD, 400  MG EVERY OTHER DAY
     Dates: start: 20081006
  5. BENICAR HCT [Concomitant]

REACTIONS (15)
  - MUCOSAL INFLAMMATION [None]
  - DERMATITIS [None]
  - RASH GENERALISED [None]
  - HYPERSENSITIVITY [None]
  - CHEILITIS [None]
  - SWELLING FACE [None]
  - DIARRHOEA [None]
  - ALOPECIA [None]
  - DERMATITIS BULLOUS [None]
  - SWOLLEN TONGUE [None]
  - GLOSSODYNIA [None]
  - RASH [None]
  - CANDIDIASIS [None]
  - OROPHARYNGEAL PAIN [None]
  - BIOPSY SKIN [None]
